FAERS Safety Report 11096255 (Version 1)
Quarter: 2015Q2

REPORT INFORMATION
  Report Type: Spontaneous
  Country: AR (occurrence: AR)
  Receive Date: 20150507
  Receipt Date: 20150507
  Transmission Date: 20150821
  Serious: Yes (Hospitalization)
  Sender: FDA-Public Use
  Company Number: AR-BIOGENIDEC-2014BI057795

PATIENT
  Age: 54 Year
  Sex: Female

DRUGS (8)
  1. PHENYTOIN. [Concomitant]
     Active Substance: PHENYTOIN
     Indication: COMPLEX PARTIAL SEIZURES
  2. CARBAMAZEPINE. [Concomitant]
     Active Substance: CARBAMAZEPINE
  3. DIAZEPAM. [Concomitant]
     Active Substance: DIAZEPAM
  4. AVONEX [Suspect]
     Active Substance: INTERFERON BETA-1A
     Indication: MULTIPLE SCLEROSIS
     Route: 030
     Dates: start: 20120203, end: 201402
  5. AVONEX [Suspect]
     Active Substance: INTERFERON BETA-1A
     Indication: MULTIPLE SCLEROSIS
     Route: 030
     Dates: start: 201402
  6. CLONAZEPAM. [Concomitant]
     Active Substance: CLONAZEPAM
  7. PHENOBARBITAL. [Concomitant]
     Active Substance: PHENOBARBITAL
  8. DICLOFENAC [Concomitant]
     Active Substance: DICLOFENAC

REACTIONS (9)
  - Eye swelling [Unknown]
  - Vomiting [Unknown]
  - Diplopia [Unknown]
  - Complex partial seizures [Not Recovered/Not Resolved]
  - Injury [Unknown]
  - Anaemia [Not Recovered/Not Resolved]
  - Head injury [Not Recovered/Not Resolved]
  - Headache [Recovered/Resolved]
  - Bradyphrenia [Unknown]

NARRATIVE: CASE EVENT DATE: 201405
